FAERS Safety Report 23478950 (Version 1)
Quarter: 2024Q1

REPORT INFORMATION
  Report Type: Report from Study
  Country: US (occurrence: US)
  Receive Date: 20240205
  Receipt Date: 20240205
  Transmission Date: 20240410
  Serious: No
  Sender: FDA-Public Use
  Company Number: US-EXELIXIS-CABO-23068942

PATIENT
  Age: 77 Year
  Sex: Male
  Weight: 78.884 kg

DRUGS (1)
  1. CABOMETYX [Suspect]
     Active Substance: CABOZANTINIB S-MALATE
     Indication: Renal cancer
     Dosage: 40 MG, QD
     Route: 048
     Dates: start: 20230818

REACTIONS (7)
  - Hyperkeratosis [Unknown]
  - Blood pressure increased [Unknown]
  - Erythema [Unknown]
  - Dysphonia [Unknown]
  - Pain in extremity [Unknown]
  - Peripheral swelling [Unknown]
  - Hypoaesthesia [Unknown]

NARRATIVE: CASE EVENT DATE: 20230901
